FAERS Safety Report 9783390 (Version 2)
Quarter: 2014Q1

REPORT INFORMATION
  Report Type: Spontaneous
  Country: IT (occurrence: IT)
  Receive Date: 20131226
  Receipt Date: 20140328
  Transmission Date: 20141002
  Serious: Yes (Hospitalization)
  Sender: FDA-Public Use
  Company Number: IT-BRISTOL-MYERS SQUIBB COMPANY-19921162

PATIENT
  Age: 87 Year
  Sex: Female

DRUGS (6)
  1. COUMADIN TABS 5 MG [Suspect]
     Indication: ATRIAL FIBRILLATION
     Dosage: 01JAN2008-21JAN2013
     Route: 048
     Dates: start: 20070101, end: 20130201
  2. FEBUXOSTAT [Concomitant]
  3. VITAMIN D [Concomitant]
  4. LANOXIN [Concomitant]
     Dosage: 1 DF: 1 TAB
  5. LASIX [Concomitant]
  6. TENORMIN [Concomitant]
     Route: 048

REACTIONS (3)
  - Haematoma [Recovered/Resolved]
  - Anaemia [Recovered/Resolved]
  - Generalised oedema [Recovered/Resolved]
